FAERS Safety Report 4710068-0 (Version None)
Quarter: 2005Q3

REPORT INFORMATION
  Report Type: 
  Country: None (occurrence: None)
  Receive Date: 20050707
  Receipt Date: 20050629
  Transmission Date: 20060218
  Serious: Yes (Other)
  Sender: FDA-Public Use
  Company Number: 234303K04USA

PATIENT
  Age: 58 Year
  Sex: Female
  Weight: 56.246 kg

DRUGS (4)
  1. REBIF [Suspect]
     Indication: MULTIPLE SCLEROSIS
     Dosage: 8.8 MCG 3 IN 1 WEEKS
     Dates: start: 20040809, end: 20040820
  2. PROVIGIL [Concomitant]
  3. LIPITOR [Concomitant]
  4. TOPROL-XL [Concomitant]

REACTIONS (12)
  - ANAPHYLACTIC REACTION [None]
  - APHASIA [None]
  - CHEST DISCOMFORT [None]
  - CHOKING [None]
  - DYSPNOEA [None]
  - DYSSTASIA [None]
  - ERYTHEMA [None]
  - FEELING ABNORMAL [None]
  - LUNG DISORDER [None]
  - THROAT TIGHTNESS [None]
  - URTICARIA [None]
  - VOMITING [None]
